FAERS Safety Report 7082795-4 (Version None)
Quarter: 2010Q4

REPORT INFORMATION
  Report Type: 
  Country: None (occurrence: None)
  Receive Date: 20101104
  Receipt Date: 20101027
  Transmission Date: 20110411
  Serious: Yes (Hospitalization)
  Sender: FDA-Public Use
  Company Number: FR-SANOFI-AVENTIS-2010SA065796

PATIENT
  Age: 64 Year
  Sex: Female

DRUGS (8)
  1. ARAVA [Suspect]
     Indication: RHEUMATOID ARTHRITIS
     Route: 048
     Dates: start: 20070701, end: 20100915
  2. PLAQUENIL [Concomitant]
  3. AMLOR [Concomitant]
     Dates: end: 20101008
  4. LANTUS [Concomitant]
  5. HUMALOG [Concomitant]
  6. LEVOTHYROXINE SODIUM [Concomitant]
  7. EUPANTOL [Concomitant]
  8. ANTIINFLAMMATORY/ANTIRHEUMATIC NON-STEROIDS [Concomitant]

REACTIONS (1)
  - RENAL FAILURE ACUTE [None]
